FAERS Safety Report 21416312 (Version 2)
Quarter: 2022Q4

REPORT INFORMATION
  Report Type: Spontaneous
  Country: US (occurrence: US)
  Receive Date: 20221006
  Receipt Date: 20221021
  Transmission Date: 20230113
  Serious: Yes (Life-Threatening, Hospitalization)
  Sender: FDA-Public Use
  Company Number: US-TEVA-2022-US-2078759

PATIENT
  Age: 58 Year
  Sex: Female

DRUGS (4)
  1. METHYLPREDNISOLONE [Suspect]
     Active Substance: METHYLPREDNISOLONE
     Indication: Immunosuppressant drug therapy
     Dosage: 1000 MILLIGRAM DAILY; FOR 3 DAYS
     Route: 042
  2. PREDNISONE [Suspect]
     Active Substance: PREDNISONE
     Indication: Immunosuppressant drug therapy
     Dosage: 20 MILLIGRAM DAILY;
     Route: 065
  3. AZATHIOPRINE [Suspect]
     Active Substance: AZATHIOPRINE
     Indication: Immunosuppressant drug therapy
     Dosage: 50 MILLIGRAM DAILY;
     Route: 065
  4. TACROLIMUS [Suspect]
     Active Substance: TACROLIMUS
     Indication: Immunosuppressant drug therapy
     Dosage: TARGETED TO A TROUGH LEVEL OF 5-10 NG/DL
     Route: 065

REACTIONS (5)
  - Haemophagocytic lymphohistiocytosis [Unknown]
  - Epstein-Barr virus infection [Unknown]
  - Klebsiella infection [Unknown]
  - Klebsiella bacteraemia [Unknown]
  - Candida infection [Unknown]
